FAERS Safety Report 19736421 (Version 1)
Quarter: 2021Q3

REPORT INFORMATION
  Report Type: Spontaneous
  Country: US (occurrence: US)
  Receive Date: 20210824
  Receipt Date: 20210824
  Transmission Date: 20211014
  Serious: No
  Sender: FDA-Public Use
  Company Number: US-BIOVITRUM-2021US7679

PATIENT
  Age: 86 Year
  Sex: Male

DRUGS (5)
  1. BABY ASPIRIN [Concomitant]
     Active Substance: ASPIRIN
  2. ATORVASTATIN [Concomitant]
     Active Substance: ATORVASTATIN
  3. CLOPIDOGREL [Concomitant]
     Active Substance: CLOPIDOGREL BISULFATE
  4. METOPROLOL. [Concomitant]
     Active Substance: METOPROLOL
  5. DOPTELET [Suspect]
     Active Substance: AVATROMBOPAG MALEATE
     Indication: PLATELET COUNT DECREASED
     Route: 048

REACTIONS (1)
  - Dysarthria [Recovered/Resolved]

NARRATIVE: CASE EVENT DATE: 20210818
